FAERS Safety Report 13115187 (Version 4)
Quarter: 2017Q4

REPORT INFORMATION
  Report Type: Spontaneous
  Country: US (occurrence: US)
  Receive Date: 20170113
  Receipt Date: 20171030
  Transmission Date: 20180320
  Serious: No
  Sender: FDA-Public Use
  Company Number: US-ACTELION-A-US2017-148276

PATIENT
  Age: 63 Year
  Sex: Female
  Weight: 66.21 kg

DRUGS (5)
  1. LETAIRIS [Concomitant]
     Active Substance: AMBRISENTAN
  2. UPTRAVI [Suspect]
     Active Substance: SELEXIPAG
     Dosage: 200 MCG, BID
     Route: 048
     Dates: start: 20161227
  3. UPTRAVI [Suspect]
     Active Substance: SELEXIPAG
     Indication: PULMONARY ARTERIAL HYPERTENSION
     Dosage: 400 MCG, BID
     Route: 048
     Dates: start: 20171003
  4. UPTRAVI [Suspect]
     Active Substance: SELEXIPAG
     Dosage: 600 MCG, BID
     Route: 048
     Dates: start: 20170112
  5. REVATIO [Concomitant]
     Active Substance: SILDENAFIL CITRATE

REACTIONS (13)
  - Unevaluable event [Unknown]
  - Headache [Unknown]
  - Eye pain [Unknown]
  - Fatigue [Unknown]
  - Tremor [Unknown]
  - Nervous system disorder [Unknown]
  - Pain in extremity [Unknown]
  - Dysphonia [Unknown]
  - Nervousness [Unknown]
  - Pain in jaw [Unknown]
  - Dyspnoea [Unknown]
  - Confusional state [Unknown]
  - Grip strength [Unknown]

NARRATIVE: CASE EVENT DATE: 20170109
